FAERS Safety Report 25141045 (Version 1)
Quarter: 2025Q1

REPORT INFORMATION
  Report Type: Spontaneous
  Country: US (occurrence: None)
  Receive Date: 20250330
  Receipt Date: 20250330
  Transmission Date: 20250409
  Serious: Yes (unspecified)
  Sender: FDA-CTU
  Company Number: None

PATIENT
  Age: 63 Year
  Sex: Male

DRUGS (2)
  1. SUNITINIB [Suspect]
     Active Substance: SUNITINIB
     Indication: Neuroendocrine tumour
     Dosage: FREQUENCY : DAILY;?
  2. SUNITINIB [Suspect]
     Active Substance: SUNITINIB
     Indication: Neoplasm malignant

REACTIONS (1)
  - Bacteraemia [None]
